FAERS Safety Report 4463557-0 (Version None)
Quarter: 2004Q3

REPORT INFORMATION
  Report Type: 
  Country: None (occurrence: None)
  Receive Date: 20040928
  Receipt Date: 20040913
  Transmission Date: 20050211
  Serious: Yes (Hospitalization)
  Sender: FDA-Public Use
  Company Number: B0345213A

PATIENT
  Age: 39 Year
  Sex: Female

DRUGS (3)
  1. RETROVIR [Suspect]
  2. EPIVIR [Suspect]
     Dates: start: 19990201
  3. NELFINAVIR MESYLATE (NELFINAVIR MESYLATE) [Suspect]
     Dates: start: 19990201

REACTIONS (4)
  - NEURITIS [None]
  - SKIN HYPOPIGMENTATION [None]
  - SKIN NODULE [None]
  - TUBERCULOID LEPROSY [None]
